FAERS Safety Report 6530765-4 (Version None)
Quarter: 2010Q1

REPORT INFORMATION
  Report Type: 
  Country: None (occurrence: None)
  Receive Date: 20100108
  Receipt Date: 20090129
  Transmission Date: 20100710
  Serious: No
  Sender: FDA-Public Use
  Company Number: A0765907A

PATIENT

DRUGS (1)
  1. LOVAZA [Suspect]
     Dosage: 4CAP PER DAY
     Route: 048

REACTIONS (3)
  - DRUG ADMINISTRATION ERROR [None]
  - DYSGEUSIA [None]
  - ERUCTATION [None]
